FAERS Safety Report 15488107 (Version 1)
Quarter: 2018Q4

REPORT INFORMATION
  Report Type: Spontaneous
  Country: UY (occurrence: UY)
  Receive Date: 20181011
  Receipt Date: 20181011
  Transmission Date: 20190205
  Serious: Yes (Hospitalization)
  Sender: FDA-Public Use
  Company Number: UY-MYLANLABS-2018M1074800

PATIENT
  Age: 8 Year
  Sex: Male

DRUGS (3)
  1. LAMOTRIGINE. [Interacting]
     Active Substance: LAMOTRIGINE
     Dosage: 50 MG, QD
     Route: 065
  2. LAMOTRIGINE. [Interacting]
     Active Substance: LAMOTRIGINE
     Indication: EPILEPSY
     Dosage: DOSE WAS INCREASED TO 50MG AFTER 2 WEEKS
     Route: 065
  3. VALPROIC ACID. [Suspect]
     Active Substance: VALPROIC ACID
     Indication: EPILEPSY
     Dosage: ENTERIC-COATED DELAYED RELEASE FORMULATION
     Route: 065

REACTIONS (6)
  - Stevens-Johnson syndrome [Recovering/Resolving]
  - Drug interaction [Recovering/Resolving]
  - Peripheral circulatory failure [Recovering/Resolving]
  - Septic shock [Recovering/Resolving]
  - Respiratory failure [Recovering/Resolving]
  - Staphylococcal skin infection [Recovering/Resolving]
